FAERS Safety Report 5315905-7 (Version None)
Quarter: 2007Q2

REPORT INFORMATION
  Report Type: 
  Country: None (occurrence: None)
  Receive Date: 20070503
  Receipt Date: 20070421
  Transmission Date: 20071010
  Serious: Yes (Other)
  Sender: FDA-Public Use
  Company Number: US-PFIZER INC-2007033374

PATIENT
  Sex: Female
  Weight: 104.54 kg

DRUGS (8)
  1. CHANTIX [Suspect]
     Indication: SMOKING CESSATION THERAPY
  2. GABAPENTIN [Suspect]
     Indication: NECK PAIN
  3. IBUPROFEN [Suspect]
     Indication: PAIN
  4. VITAMIN CAP [Concomitant]
  5. HYDROCHLOROTHIAZIDE [Concomitant]
  6. POTASSIUM ACETATE [Concomitant]
  7. RANITIDINE [Concomitant]
  8. SIMVASTATIN [Concomitant]

REACTIONS (2)
  - BRAIN NEOPLASM [None]
  - DRUG INEFFECTIVE [None]
